FAERS Safety Report 7434580-9 (Version None)
Quarter: 2011Q2

REPORT INFORMATION
  Report Type: 
  Country: None (occurrence: None)
  Receive Date: 20110420
  Receipt Date: 20110420
  Transmission Date: 20111010
  Serious: No
  Sender: FDA-Public Use
  Company Number: None

PATIENT
  Sex: Female

DRUGS (2)
  1. VASOPRESSIN 20 UNITS/ML AMERICAN REGENT [Suspect]
     Indication: SALPINGO-OOPHORECTOMY BILATERAL
     Dosage: 20 UNITS INTRACERVICAL INTRA-OPERATIVELY
     Route: 019
  2. VASOPRESSIN 20 UNITS/ML AMERICAN REGENT [Suspect]
     Indication: HYSTERECTOMY
     Dosage: 20 UNITS INTRACERVICAL INTRA-OPERATIVELY
     Route: 019

REACTIONS (1)
  - DRUG INEFFECTIVE [None]
